FAERS Safety Report 8218797-1 (Version None)
Quarter: 2012Q1

REPORT INFORMATION
  Report Type: 
  Country: None (occurrence: None)
  Receive Date: 20120306
  Receipt Date: 20110902
  Transmission Date: 20120608
  Serious: Yes (Life-Threatening)
  Sender: FDA-Public Use
  Company Number: US-006202

PATIENT
  Age: 61 Year
  Sex: Male
  Weight: 115 kg

DRUGS (19)
  1. FISH OIL (FISH OIL) [Concomitant]
  2. ASPIRIN [Concomitant]
  3. FOLIC ACID [Concomitant]
  4. HYDROCHLOROTHIAZIDE [Concomitant]
  5. CANGRELOR VS. CLOPIDOGREL VS. PLACEBO () [Suspect]
     Indication: PERCUTANEOUS CORONARY INTERVENTION
     Dosage: ORAL, 8.8ML
     Dates: start: 20110309, end: 20110309
  6. NITROGLYCERIN [Concomitant]
  7. SAW PALMETTO (SERENOA REPENS) [Concomitant]
  8. PRAVASTATIN [Concomitant]
  9. LISINOPRIL [Concomitant]
  10. ISOVUE-370 [Suspect]
     Indication: ANGIOGRAM
     Dosage: 386ML ONCE
     Route: 022
     Dates: start: 20110309, end: 20110309
  11. NEBIVOLOL HCL [Concomitant]
  12. RANITIDINE HYDROCHLORIDE [Concomitant]
  13. BIVALIRUDIN [Suspect]
     Indication: ANTICOAGULANT THERAPY
     Dosage: INTRAVENOUS *
     Dates: start: 20110309, end: 20110309
  14. CENTRUM (ASCORBIC ACID; BETACAROTENE;COLECALCIFEROL; FOLIC ACID; MINER [Concomitant]
  15. HEPARIN [Concomitant]
  16. TOCOPHEROL (TOCOPHEROL) [Concomitant]
  17. CLOPIDOGREL BISULFATE [Concomitant]
  18. FLUOXETINE [Concomitant]
  19. HEPARIN [Concomitant]

REACTIONS (1)
  - ANAPHYLACTIC REACTION [None]
